FAERS Safety Report 14915780 (Version 1)
Quarter: 2018Q2

REPORT INFORMATION
  Report Type: Report from Study
  Country: CR (occurrence: CR)
  Receive Date: 20180518
  Receipt Date: 20180518
  Transmission Date: 20180711
  Serious: Yes (Other)
  Sender: FDA-Public Use
  Company Number: PHHY2017CR092803

PATIENT
  Age: 88 Year
  Sex: Female

DRUGS (2)
  1. SANDOSTATIN LAR DEPOT [Suspect]
     Active Substance: OCTREOTIDE ACETATE
     Dosage: 20 MG, UNK
     Route: 065
  2. SANDOSTATIN LAR DEPOT [Suspect]
     Active Substance: OCTREOTIDE ACETATE
     Indication: PRODUCT USED FOR UNKNOWN INDICATION
     Dosage: 30 MG, UNK
     Route: 065

REACTIONS (6)
  - Memory impairment [Unknown]
  - Decreased appetite [Unknown]
  - Dizziness [Unknown]
  - Weight decreased [Unknown]
  - Diarrhoea [Not Recovered/Not Resolved]
  - Loss of consciousness [Unknown]
